FAERS Safety Report 8602697-9 (Version None)
Quarter: 2012Q3

REPORT INFORMATION
  Report Type: 
  Country: None (occurrence: None)
  Receive Date: 20120423
  Receipt Date: 20090701
  Transmission Date: 20120928
  Serious: Yes (Other)
  Sender: FDA-Public Use
  Company Number: PHEH2009US06268

PATIENT
  Age: 55 Year
  Sex: Female
  Weight: 105.7 kg

DRUGS (1)
  1. FEMARA [Suspect]
     Indication: BREAST CANCER
     Dosage: 2.5 MG, QD, ORAL
     Route: 048
     Dates: start: 20090410

REACTIONS (3)
  - NIGHT SWEATS [None]
  - INSOMNIA [None]
  - HOT FLUSH [None]
